FAERS Safety Report 9853567 (Version 4)
Quarter: 2014Q2

REPORT INFORMATION
  Report Type: Report from Study
  Country: US (occurrence: US)
  Receive Date: 20140129
  Receipt Date: 20140618
  Transmission Date: 20141212
  Serious: Yes (Hospitalization)
  Sender: FDA-Public Use
  Company Number: US-ACTELION-A-US2014-94210

PATIENT
  Age: 55 Year
  Sex: Female

DRUGS (2)
  1. VENTAVIS [Suspect]
     Indication: PULMONARY ARTERIAL HYPERTENSION
     Dosage: UNK
     Route: 055
  2. TRACLEER [Suspect]
     Indication: PULMONARY ARTERIAL HYPERTENSION
     Dosage: UNK
     Route: 048

REACTIONS (7)
  - Tracheostomy [Unknown]
  - Mechanical ventilation [Unknown]
  - Lung disorder [Unknown]
  - Nerve injury [Unknown]
  - Pneumonia [Unknown]
  - Pulmonary arterial hypertension [Unknown]
  - Respiratory disorder [Unknown]
